FAERS Safety Report 7113975-7 (Version None)
Quarter: 2010Q4

REPORT INFORMATION
  Report Type: 
  Country: None (occurrence: None)
  Receive Date: 20101119
  Receipt Date: 20101117
  Transmission Date: 20110411
  Serious: Yes (Hospitalization)
  Sender: FDA-Public Use
  Company Number: A0893004A

PATIENT
  Age: 59 Year
  Sex: Female

DRUGS (7)
  1. ADVAIR DISKUS 100/50 [Suspect]
     Indication: ASTHMA
     Route: 055
     Dates: start: 20090101
  2. KLONOPIN [Concomitant]
  3. PAXIL [Concomitant]
  4. ZESTRIL [Concomitant]
  5. ZANTAC [Concomitant]
  6. HYDROCHLOROTHIAZIDE [Concomitant]
  7. VENTOLIN [Concomitant]

REACTIONS (2)
  - DIARRHOEA [None]
  - DYSPNOEA [None]
